FAERS Safety Report 12610372 (Version 1)
Quarter: 2016Q3

REPORT INFORMATION
  Report Type: Spontaneous
  Country: US (occurrence: None)
  Receive Date: 20160729
  Receipt Date: 20160729
  Transmission Date: 20161109
  Serious: Yes (Other)
  Sender: FDA-Public Use
  Company Number: None

PATIENT
  Age: 46 Year
  Sex: Female
  Weight: 49.9 kg

DRUGS (9)
  1. BOTOX [Suspect]
     Active Substance: ONABOTULINUMTOXINA
  2. MAGNESIUM [Concomitant]
     Active Substance: MAGNESIUM
  3. LEVOTHYROXINE. [Concomitant]
     Active Substance: LEVOTHYROXINE
  4. VITAMINS (DAILY) [Concomitant]
  5. FOLIC [Concomitant]
     Active Substance: FOLIC ACID
  6. VITAMIN D [Concomitant]
     Active Substance: CHOLECALCIFEROL
  7. LEXAPRO [Concomitant]
     Active Substance: ESCITALOPRAM OXALATE
  8. CALCIUM [Concomitant]
     Active Substance: CALCIUM
  9. LORAZEPAM. [Suspect]
     Active Substance: LORAZEPAM

REACTIONS (5)
  - Drug ineffective [None]
  - Activities of daily living impaired [None]
  - Musculoskeletal discomfort [None]
  - Dizziness [None]
  - Neck pain [None]

NARRATIVE: CASE EVENT DATE: 20160429
